FAERS Safety Report 25953487 (Version 1)
Quarter: 2025Q4

REPORT INFORMATION
  Report Type: Spontaneous
  Country: EU (occurrence: EU)
  Receive Date: 20251023
  Receipt Date: 20251023
  Transmission Date: 20260118
  Serious: Yes (Death, Other)
  Sender: AMGEN
  Company Number: EU-AMGEN-ITASP2025206076

PATIENT

DRUGS (5)
  1. CARFILZOMIB [Suspect]
     Active Substance: CARFILZOMIB
     Indication: Plasma cell myeloma refractory
     Dosage: 20 MILLIGRAM/SQ. METER, (LASTING 30 MIN) ON DAYS 1 AND 2
     Route: 040
  2. CARFILZOMIB [Suspect]
     Active Substance: CARFILZOMIB
     Dosage: 27 MILLIGRAM/SQ. METER, D8,9,15,16 1CY; THEN D1,2,8,9,15,16 UP TO 12CY, SAME ON D1,2,15,16 SINCE 13
     Route: 040
  3. FILGRASTIM [Suspect]
     Active Substance: FILGRASTIM
     Indication: Prophylaxis
     Dosage: UNK
     Route: 065
  4. LENALIDOMIDE [Suspect]
     Active Substance: LENALIDOMIDE
     Indication: Plasma cell myeloma refractory
     Dosage: 25 MILLIGRAM, QD, DAYS 1-21 OF EACH 28-DAY CYCLE
     Route: 048
  5. DEXAMETHASONE [Suspect]
     Active Substance: DEXAMETHASONE
     Indication: Plasma cell myeloma refractory
     Dosage: 20 MILLIGRAM, ADMINISTERED ONLY ON THE SAME DAYS OF CARFILZOMIB
     Route: 048

REACTIONS (21)
  - Death [Fatal]
  - Pneumonia [Unknown]
  - Renal failure [Unknown]
  - Infection [Unknown]
  - Hypertension [Unknown]
  - Thrombophlebitis [Unknown]
  - Thrombosis [Unknown]
  - Anaemia [Unknown]
  - Neutropenia [Unknown]
  - Thrombocytopenia [Unknown]
  - Neuropathy peripheral [Unknown]
  - Plasma cell myeloma [Unknown]
  - Phlebitis [Unknown]
  - Diarrhoea [Unknown]
  - Cardiovascular disorder [Unknown]
  - Carbohydrate metabolism disorder [Unknown]
  - Skin disorder [Unknown]
  - Musculoskeletal toxicity [Unknown]
  - Asthenia [Unknown]
  - Toxicity to various agents [Unknown]
  - Therapy partial responder [Unknown]
